FAERS Safety Report 8469640 (Version 4)
Quarter: 2012Q4

REPORT INFORMATION
  Report Type: 
  Country: SE (occurrence: SE)
  Receive Date: 20120321
  Receipt Date: 20121210
  Transmission Date: 20130627
  Serious: Yes (Other)
  Sender: FDA-Public Use
  Company Number: PHHY2012SE022845

PATIENT
  Age: 55 Year
  Sex: Male

DRUGS (9)
  1. CLOZAPINE [Suspect]
     Route: 048
  2. LEPONEX [Suspect]
     Route: 048
  3. CLOZAPINE ACTAVIS [Suspect]
     Route: 048
  4. METFORMIN HEXAL SANDOZ [Concomitant]
  5. ESIDREX [Concomitant]
  6. METOPROLOL SANDOZ [Concomitant]
  7. ENALAPRIL SANDOZ [Concomitant]
  8. OXASCAND [Concomitant]
  9. ZOPICLONE ACTAVIS [Concomitant]

REACTIONS (6)
  - Fear of death [Recovering/Resolving]
  - Diabetes mellitus [Not Recovered/Not Resolved]
  - Blood pressure increased [Not Recovered/Not Resolved]
  - Heart rate increased [Not Recovered/Not Resolved]
  - Fatigue [Not Recovered/Not Resolved]
  - Hypersomnia [Unknown]
